FAERS Safety Report 11780778 (Version 1)
Quarter: 2015Q4

REPORT INFORMATION
  Report Type: Spontaneous
  Country: US (occurrence: US)
  Receive Date: 20151126
  Receipt Date: 20151126
  Transmission Date: 20160305
  Serious: Yes (Hospitalization)
  Sender: FDA-Public Use
  Company Number: US-BEH-2015056032

PATIENT
  Sex: Female
  Weight: 67 kg

DRUGS (21)
  1. HIZENTRA [Suspect]
     Active Substance: HUMAN IMMUNOGLOBULIN G
     Indication: HYPER IGM SYNDROME
     Dosage: 2 GM 10 ML VIALS
     Route: 058
  2. SINGULAIR [Concomitant]
     Active Substance: MONTELUKAST SODIUM
  3. MAGNESIUM [Concomitant]
     Active Substance: MAGNESIUM
  4. OXYCONTIN [Concomitant]
     Active Substance: OXYCODONE HYDROCHLORIDE
  5. VYTORIN [Concomitant]
     Active Substance: EZETIMIBE\SIMVASTATIN
  6. ISOSORBIDE MONONITRATE. [Concomitant]
     Active Substance: ISOSORBIDE MONONITRATE
  7. LMX [Concomitant]
     Active Substance: LIDOCAINE
  8. CLARITIN [Concomitant]
     Active Substance: LORATADINE
  9. NITROGLYCERIN. [Concomitant]
     Active Substance: NITROGLYCERIN
  10. GLUCOPHAGE [Concomitant]
     Active Substance: METFORMIN HYDROCHLORIDE
  11. HIZENTRA [Suspect]
     Active Substance: HUMAN IMMUNOGLOBULIN G
     Indication: DIFFUSE ALOPECIA
     Dosage: 2 GM 10 ML VIALS
     Route: 058
  12. ACETAMINOPHEN. [Concomitant]
     Active Substance: ACETAMINOPHEN
  13. DIPHENHYDRAMINE. [Concomitant]
     Active Substance: DIPHENHYDRAMINE
  14. MUPIROCIN. [Concomitant]
     Active Substance: MUPIROCIN
  15. PANTOPRAZOLE [Concomitant]
     Active Substance: PANTOPRAZOLE SODIUM
  16. VITAMIN D3 [Concomitant]
     Active Substance: CHOLECALCIFEROL
  17. METOPROLOL TARTRATE. [Concomitant]
     Active Substance: METOPROLOL TARTRATE
  18. RANEXA [Concomitant]
     Active Substance: RANOLAZINE
  19. FLUTICASONE PROPIONATE. [Concomitant]
     Active Substance: FLUTICASONE PROPIONATE
  20. SYNTHROID [Concomitant]
     Active Substance: LEVOTHYROXINE SODIUM
  21. GABAPENTIN. [Concomitant]
     Active Substance: GABAPENTIN

REACTIONS (1)
  - Pneumonia [Unknown]
